FAERS Safety Report 8576170-0 (Version None)
Quarter: 2012Q3

REPORT INFORMATION
  Report Type: 
  Country: None (occurrence: None)
  Receive Date: 20120807
  Receipt Date: 20120803
  Transmission Date: 20120928
  Serious: No
  Sender: FDA-Public Use
  Company Number: US-PFIZER INC-2012169688

PATIENT
  Age: 69 Year
  Sex: Female

DRUGS (2)
  1. ESTRING [Suspect]
     Indication: CYSTOCELE
  2. ESTRING [Suspect]
     Indication: ATROPHIC VULVOVAGINITIS
     Dosage: 2 MG, UNK
     Route: 067
     Dates: start: 20120629, end: 20120712

REACTIONS (1)
  - RASH [None]
